FAERS Safety Report 4385498-X (Version None)
Quarter: 2004Q2

REPORT INFORMATION
  Report Type: 
  Country: None (occurrence: None)
  Receive Date: 20040622
  Receipt Date: 20040614
  Transmission Date: 20050107
  Serious: Yes (Hospitalization)
  Sender: FDA-Public Use
  Company Number: TPA2004A00520

PATIENT
  Age: 74 Year
  Sex: Female
  Weight: 109.7705 kg

DRUGS (7)
  1. ACTOS [Suspect]
     Indication: DIABETES MELLITUS NON-INSULIN-DEPENDENT
     Dosage: 15 MG, 1 IN 1 D, PER ORAL; 15 MG, 2 IN 1 D, PER ORAL; 30 MG, QHS, PER ORAL
     Route: 048
  2. LEVATOL (PENBUTOLOL SULFATE) (10 MILLIGRAM) [Concomitant]
  3. CLONIDINE [Concomitant]
  4. ALDACTAZIDE [Concomitant]
  5. NIACIN [Concomitant]
  6. VITAMIN C (ASCORBIC ACID) [Concomitant]
  7. VITAMIN E [Concomitant]

REACTIONS (3)
  - BLOOD GLUCOSE INCREASED [None]
  - JOINT SWELLING [None]
  - MALAISE [None]
